FAERS Safety Report 7624686-3 (Version None)
Quarter: 2011Q3

REPORT INFORMATION
  Report Type: 
  Country: None (occurrence: None)
  Receive Date: 20110720
  Receipt Date: 20110719
  Transmission Date: 20111222
  Serious: No
  Sender: FDA-Public Use
  Company Number: US-B.I. PHARMACEUTICALS,INC./RIDGEFIELD-2011-BP-18049BP

PATIENT
  Age: 79 Year
  Sex: Female

DRUGS (6)
  1. HUMALOG [Concomitant]
     Indication: DIABETES MELLITUS
     Route: 058
  2. LOPRESSOR [Concomitant]
     Indication: HYPERTENSION
     Route: 048
  3. ZOCOR [Concomitant]
     Indication: BLOOD CHOLESTEROL INCREASED
     Route: 048
  4. PRADAXA [Suspect]
     Indication: ATRIAL FIBRILLATION
     Dosage: 300 MG
     Route: 048
     Dates: start: 20110705
  5. LEVOXYL [Concomitant]
     Indication: THYROID DISORDER
     Route: 048
  6. LANTUS [Concomitant]
     Indication: DIABETES MELLITUS
     Route: 058

REACTIONS (1)
  - BLOOD GLUCOSE DECREASED [None]
